FAERS Safety Report 14225629 (Version 4)
Quarter: 2017Q4

REPORT INFORMATION
  Report Type: Report from Study
  Country: RU (occurrence: RU)
  Receive Date: 20171127
  Receipt Date: 20171229
  Transmission Date: 20180321
  Serious: Yes (Life-Threatening, Other)
  Sender: FDA-Public Use
  Company Number: RU-EMD SERONO-E2B_80090122

PATIENT
  Age: 65 Year
  Sex: Female
  Weight: 45 kg

DRUGS (7)
  1. ZOMETA [Concomitant]
     Active Substance: ZOLEDRONIC ACID
     Indication: RENAL CELL CARCINOMA
     Dosage: 4 MG, MONTHLY
  2. AVELUMAB [Suspect]
     Active Substance: AVELUMAB
     Indication: RENAL CELL CARCINOMA
     Dosage: 500 MG, CYCLIC: EVERY 2 WEEKS
     Dates: start: 20171006, end: 20171117
  3. PARACETAMOL [Concomitant]
     Active Substance: ACETAMINOPHEN
     Indication: PREMEDICATION
  4. INSULIN [Concomitant]
     Active Substance: INSULIN NOS
     Indication: TYPE 1 DIABETES MELLITUS
     Dosage: 10 ED, 3X/DAY
  5. DEXTRIFERRON [Concomitant]
     Active Substance: DEXTRIFERRON
     Indication: ANAEMIA
     Dosage: 100 MG, 2X/DAY
  6. AXITINIB [Suspect]
     Active Substance: AXITINIB
     Indication: RENAL CELL CARCINOMA
     Dosage: 5 MG, 2X/DAY, CONTINUOUS
     Dates: start: 20171006
  7. SUPRASTIN [Concomitant]
     Active Substance: CHLOROPYRAMINE HYDROCHLORIDE
     Indication: PREMEDICATION
     Dosage: 20 MG, UNK

REACTIONS (1)
  - Circulatory collapse [Recovered/Resolved]

NARRATIVE: CASE EVENT DATE: 20171117
